FAERS Safety Report 6686126-0 (Version None)
Quarter: 2010Q2

REPORT INFORMATION
  Report Type: 
  Country: None (occurrence: None)
  Receive Date: 20100414
  Receipt Date: 20100401
  Transmission Date: 20101027
  Serious: Yes (Other)
  Sender: FDA-Public Use
  Company Number: FKO201000118

PATIENT
  Age: 45 Year
  Sex: Female

DRUGS (4)
  1. CYCLOPHOSPHAMIDE [Suspect]
     Indication: BREAST CANCER
     Dosage: (500 MG/M2,2 X IN 4 WEEKS)
  2. EPIRUBICIN [Suspect]
     Indication: BREAST CANCER
     Dosage: (50 MG/M2,2 X IN 4 WEEKS)
  3. FLUOROURACIL [Suspect]
     Indication: BREAST CANCER
     Dosage: (500 MG/M2,2 X IN 4 WEEKS
  4. TAMOXIFEN CITRATE [Suspect]
     Indication: BREAST CANCER
     Dosage: 20 MG (20 MG,1 IN 1 D)

REACTIONS (2)
  - BREAST CANCER RECURRENT [None]
  - T-CELL PROLYMPHOCYTIC LEUKAEMIA [None]
